FAERS Safety Report 7560222-8 (Version None)
Quarter: 2011Q2

REPORT INFORMATION
  Report Type: 
  Country: None (occurrence: None)
  Receive Date: 20110621
  Receipt Date: 20110614
  Transmission Date: 20111010
  Serious: Yes (Hospitalization)
  Sender: FDA-Public Use
  Company Number: US-BRACCO-006351

PATIENT
  Sex: Male

DRUGS (1)
  1. MULTIHANCE [Suspect]
     Indication: NUCLEAR MAGNETIC RESONANCE IMAGING BRAIN
     Route: 042
     Dates: start: 20110610, end: 20110610

REACTIONS (3)
  - FLUSHING [None]
  - ACUTE CORONARY SYNDROME [None]
  - UNRESPONSIVE TO STIMULI [None]
